FAERS Safety Report 16138396 (Version 1)
Quarter: 2019Q1

REPORT INFORMATION
  Report Type: Spontaneous
  Country: US (occurrence: US)
  Receive Date: 20190330
  Receipt Date: 20190330
  Transmission Date: 20190418
  Serious: No
  Sender: FDA-Public Use
  Company Number: US-UNITED THERAPEUTICS-UNT-2019-005549

PATIENT
  Sex: Female

DRUGS (1)
  1. REMODULIN [Suspect]
     Active Substance: TREPROSTINIL
     Indication: PULMONARY ARTERIAL HYPERTENSION
     Dosage: 0.106 ?G/KG, CONTINUING
     Route: 058
     Dates: start: 20140109

REACTIONS (4)
  - Infusion site infection [Unknown]
  - Varicose vein [Unknown]
  - Infusion site paraesthesia [Unknown]
  - Infusion site pain [Unknown]
